FAERS Safety Report 5741277-X (Version None)
Quarter: 2008Q2

REPORT INFORMATION
  Report Type: 
  Country: None (occurrence: None)
  Receive Date: 20080514
  Receipt Date: 20080501
  Transmission Date: 20081010
  Serious: Yes (Death)
  Sender: FDA-Public Use
  Company Number: 2008SP001071`

PATIENT
  Age: 87 Year
  Sex: Male
  Weight: 90.7 kg

DRUGS (1)
  1. XOPENEX [Suspect]
     Indication: EMPHYSEMA
     Dosage: Q6H; INHALATION
     Route: 055
     Dates: start: 20060101, end: 20080301

REACTIONS (1)
  - LUNG NEOPLASM MALIGNANT [None]
